FAERS Safety Report 4985253-3 (Version None)
Quarter: 2006Q2

REPORT INFORMATION
  Report Type: 
  Country: None (occurrence: None)
  Receive Date: 20060427
  Receipt Date: 20051010
  Transmission Date: 20061013
  Serious: Yes (Hospitalization)
  Sender: FDA-Public Use
  Company Number: NO-MERCK-0510NOR00019

PATIENT
  Age: 45 Year
  Sex: Male

DRUGS (1)
  1. VIOXX [Suspect]
     Indication: OSTEOARTHRITIS
     Route: 048
     Dates: start: 20011101, end: 20040101

REACTIONS (7)
  - DYSPNOEA [None]
  - GASTRITIS [None]
  - HEADACHE [None]
  - HYPERTENSION [None]
  - MYALGIA [None]
  - OEDEMA PERIPHERAL [None]
  - POLYCYTHAEMIA [None]
